FAERS Safety Report 7113011-2 (Version None)
Quarter: 2010Q4

REPORT INFORMATION
  Report Type: 
  Country: None (occurrence: None)
  Receive Date: 20101119
  Receipt Date: 20101112
  Transmission Date: 20110411
  Serious: Yes (Other)
  Sender: FDA-Public Use
  Company Number: US-KINGPHARMUSA00001-K201001390

PATIENT
  Age: 49 Year
  Sex: Female

DRUGS (1)
  1. EMBEDA [Suspect]
     Indication: NECK PAIN
     Dosage: 20 MG, EVERY 12 HOURS
     Route: 048

REACTIONS (3)
  - ABNORMAL BEHAVIOUR [None]
  - MENTAL IMPAIRMENT [None]
  - RENAL FAILURE ACUTE [None]
